FAERS Safety Report 13610812 (Version 1)
Quarter: 2017Q2

REPORT INFORMATION
  Report Type: Spontaneous
  Country: AU (occurrence: AU)
  Receive Date: 20170605
  Receipt Date: 20170605
  Transmission Date: 20170830
  Serious: Yes (Hospitalization, Other)
  Sender: FDA-Public Use
  Company Number: AU-ROCHE-1939004

PATIENT
  Age: 66 Year
  Sex: Female

DRUGS (7)
  1. GAZYVA [Suspect]
     Active Substance: OBINUTUZUMAB
     Indication: CHRONIC LYMPHOCYTIC LEUKAEMIA
     Dosage: DAY 1
     Route: 065
  2. GAZYVA [Suspect]
     Active Substance: OBINUTUZUMAB
     Dosage: DAY 2
     Route: 065
  3. CHLORAMBUCIL [Suspect]
     Active Substance: CHLORAMBUCIL
     Indication: PRODUCT USED FOR UNKNOWN INDICATION
     Route: 065
  4. RASBURICASE [Concomitant]
     Active Substance: RASBURICASE
  5. CIPRAMIL [Concomitant]
     Active Substance: CITALOPRAM HYDROBROMIDE
     Route: 065
  6. OXYGEN. [Concomitant]
     Active Substance: OXYGEN
     Route: 050
  7. PARACETAMOL [Concomitant]
     Active Substance: ACETAMINOPHEN
     Route: 048

REACTIONS (5)
  - Neutrophil count decreased [Unknown]
  - Cytokine release syndrome [Unknown]
  - Haemoglobin decreased [Unknown]
  - Blood creatinine increased [Unknown]
  - Fatigue [Unknown]
